FAERS Safety Report 14217158 (Version 1)
Quarter: 2017Q4

REPORT INFORMATION
  Report Type: Spontaneous
  Country: US (occurrence: US)
  Receive Date: 20171122
  Receipt Date: 20171122
  Transmission Date: 20180321
  Serious: No
  Sender: FDA-Public Use
  Company Number: US-LUPIN PHARMACEUTICALS INC.-2017-01581

PATIENT
  Sex: Male

DRUGS (1)
  1. METFORMIN HYDROCHLORIDE EXTENDED RELEASE TABLET USP 1000 MG [Suspect]
     Active Substance: METFORMIN HYDROCHLORIDE
     Indication: PRODUCT USED FOR UNKNOWN INDICATION
     Dosage: 3 DF, UNK

REACTIONS (2)
  - Product taste abnormal [Unknown]
  - Abdominal discomfort [Unknown]
